FAERS Safety Report 9379051 (Version 1)
Quarter: 2013Q3

REPORT INFORMATION
  Report Type: Spontaneous
  Country: US (occurrence: US)
  Receive Date: 20130702
  Receipt Date: 20130702
  Transmission Date: 20140515
  Serious: No
  Sender: FDA-Public Use
  Company Number: US-BAYER-2013-080451

PATIENT
  Sex: 0

DRUGS (6)
  1. ALEVE CAPLET [Suspect]
     Indication: BACK PAIN
     Dosage: UNK DF, UNK
  2. ALEVE CAPLET [Suspect]
     Indication: ARTHRALGIA
  3. ACETAMINOPHEN [Concomitant]
     Indication: BACK PAIN
  4. ACETAMINOPHEN [Concomitant]
     Indication: ARTHRALGIA
  5. NAPROXEN [Concomitant]
     Indication: BACK PAIN
  6. NAPROXEN [Concomitant]
     Indication: ARTHRALGIA

REACTIONS (1)
  - Drug ineffective [None]
